FAERS Safety Report 8022192-8 (Version None)
Quarter: 2012Q1

REPORT INFORMATION
  Report Type: 
  Country: None (occurrence: None)
  Receive Date: 20120104
  Receipt Date: 20111227
  Transmission Date: 20120608
  Serious: Yes (Hospitalization, Other)
  Sender: FDA-Public Use
  Company Number: JP-ASTRAZENECA-2011SE63495

PATIENT
  Age: 65 Year
  Sex: Female
  Weight: 46 kg

DRUGS (11)
  1. OMEPRAZOLE [Concomitant]
     Route: 048
     Dates: start: 20100303
  2. NORVASC [Concomitant]
     Route: 048
  3. NORVASC [Concomitant]
     Route: 048
     Dates: start: 20110506
  4. PRECIPITATED CALCIUM CARBONATE SANWA [Concomitant]
     Route: 048
     Dates: start: 20100220
  5. CANDESARTAN CILEXETIL [Suspect]
     Indication: HYPERTENSION
     Route: 048
     Dates: start: 20100303, end: 20110804
  6. VASOMET [Concomitant]
     Route: 048
     Dates: start: 20110119, end: 20110505
  7. CANDESARTAN CILEXETIL [Suspect]
     Route: 048
     Dates: start: 20110805, end: 20110825
  8. CANDESARTAN CILEXETIL [Suspect]
     Route: 048
     Dates: start: 20110826, end: 20110826
  9. VASOMET [Concomitant]
     Route: 048
     Dates: start: 20100818, end: 20110118
  10. ONEALFA [Concomitant]
     Route: 048
     Dates: start: 20100212
  11. VASOMET [Concomitant]
     Route: 048
     Dates: start: 20100721, end: 20100817

REACTIONS (1)
  - ANGIOEDEMA [None]
